FAERS Safety Report 8407112-6 (Version None)
Quarter: 2012Q2

REPORT INFORMATION
  Report Type: 
  Country: None (occurrence: None)
  Receive Date: 20120604
  Receipt Date: 20120525
  Transmission Date: 20120825
  Serious: Yes (Death, Hospitalization)
  Sender: FDA-Public Use
  Company Number: BR-ROCHE-1072821

PATIENT
  Sex: Female
  Weight: 54 kg

DRUGS (7)
  1. ACTEMRA [Suspect]
  2. ACTEMRA [Suspect]
     Indication: JUVENILE ARTHRITIS
     Dates: start: 20110901, end: 20111101
  3. ACTEMRA [Suspect]
  4. PANTOPRAZOLE SODIUM [Concomitant]
  5. CALCIUM 10% [Concomitant]
  6. NEUTROFER [Concomitant]
  7. METICORTEN [Concomitant]

REACTIONS (3)
  - HEPATITIS FULMINANT [None]
  - ALOPECIA [None]
  - BLOOD CHOLESTEROL INCREASED [None]
